FAERS Safety Report 20532066 (Version 1)
Quarter: 2022Q1

REPORT INFORMATION
  Report Type: Spontaneous
  Country: US (occurrence: US)
  Receive Date: 20220301
  Receipt Date: 20220301
  Transmission Date: 20220423
  Serious: No
  Sender: FDA-Public Use
  Company Number: US-AMRYT PHARMACEUTICALS DAC-AEGR005262

PATIENT
  Age: 15 Year
  Sex: Female
  Weight: 59.592 kg

DRUGS (2)
  1. MYALEPT [Suspect]
     Active Substance: METRELEPTIN
     Indication: Lipodystrophy acquired
     Dosage: 5 MILLIGRAM (1ML), QD
  2. BACTERIOSTATIC WATER [Concomitant]
     Active Substance: WATER
     Indication: Product used for unknown indication

REACTIONS (2)
  - Exposure to SARS-CoV-2 [Unknown]
  - Adverse event [Unknown]

NARRATIVE: CASE EVENT DATE: 20210801
